FAERS Safety Report 22142614 (Version 1)
Quarter: 2023Q1

REPORT INFORMATION
  Report Type: Spontaneous
  Country: US (occurrence: US)
  Receive Date: 20230327
  Receipt Date: 20230327
  Transmission Date: 20230417
  Serious: No
  Sender: FDA-Public Use
  Company Number: US-SA-SAC20230323000256

PATIENT
  Age: 48 Year
  Sex: Female

DRUGS (7)
  1. DUPIXENT [Suspect]
     Active Substance: DUPILUMAB
     Indication: Dermatitis atopic
     Dosage: 300 MG: QOW
     Route: 058
     Dates: start: 20210115
  2. DUPIXENT [Suspect]
     Active Substance: DUPILUMAB
     Dosage: 300 MG: Q4W
     Route: 058
  3. NABUMETONE [Concomitant]
     Active Substance: NABUMETONE
  4. MELOXICAM [Concomitant]
     Active Substance: MELOXICAM
  5. HYDROXYZINE [Concomitant]
     Active Substance: HYDROXYZINE HYDROCHLORIDE
  6. SERTRALINE [Concomitant]
     Active Substance: SERTRALINE HYDROCHLORIDE
  7. PHENTERMINE [Concomitant]
     Active Substance: PHENTERMINE

REACTIONS (3)
  - Meniscus injury [Recovered/Resolved]
  - Dermatitis atopic [Recovered/Resolved]
  - Off label use [Unknown]
